FAERS Safety Report 5193189-0 (Version None)
Quarter: 2006Q4

REPORT INFORMATION
  Report Type: 
  Country: None (occurrence: None)
  Receive Date: 20061221
  Receipt Date: 20061211
  Transmission Date: 20070319
  Serious: No
  Sender: FDA-Public Use
  Company Number: 2005JP002495

PATIENT
  Age: 3 Year
  Sex: Male
  Weight: 12.5 kg

DRUGS (2)
  1. PROTOPIC [Suspect]
     Indication: DERMATITIS ATOPIC
     Dosage: 0.03% TOPICAL
     Route: 061
     Dates: start: 20050525, end: 20060510
  2. BETAMETHASONE VALERATE [Suspect]
     Indication: DERMATITIS ATOPIC
     Dosage: SEE IMAGE
     Route: 061

REACTIONS (4)
  - CONDITION AGGRAVATED [None]
  - IMPETIGO [None]
  - MOLLUSCUM CONTAGIOSUM [None]
  - SKIN PAPILLOMA [None]
